FAERS Safety Report 21332286 (Version 2)
Quarter: 2022Q3

REPORT INFORMATION
  Report Type: Report from Study
  Country: CN (occurrence: None)
  Receive Date: 20220914
  Receipt Date: 20220922
  Transmission Date: 20221027
  Serious: Yes (Hospitalization)
  Sender: FDA-Public Use
  Company Number: CN-ROCHE-3014587

PATIENT
  Age: 58 Year
  Sex: Male
  Weight: 71 kg

DRUGS (17)
  1. ATEZOLIZUMAB [Suspect]
     Active Substance: ATEZOLIZUMAB
     Indication: Oesophageal adenocarcinoma
     Dosage: DATE OF MOST RECENT DOSE PRIOR TO SAE 10/JAN/2022, 11/AUG/2022, LIQUID
     Route: 041
     Dates: start: 20210812, end: 20220128
  2. ATEZOLIZUMAB [Suspect]
     Active Substance: ATEZOLIZUMAB
     Indication: Metastatic gastric cancer
     Dosage: LIQUID
     Route: 041
     Dates: start: 20220222, end: 20220830
  3. ATEZOLIZUMAB [Suspect]
     Active Substance: ATEZOLIZUMAB
     Indication: Human epidermal growth factor receptor negative
     Dosage: LIQUID
     Route: 041
     Dates: start: 20220916
  4. TIRAGOLUMAB [Suspect]
     Active Substance: TIRAGOLUMAB
     Indication: Oesophageal adenocarcinoma
     Dosage: DATE OF MOST RECENT DOSE PRIOR TO SAE 10/JAN/2022, 11/AUG/2022 , LIQUID,
     Route: 042
     Dates: start: 20210812, end: 20220128
  5. TIRAGOLUMAB [Suspect]
     Active Substance: TIRAGOLUMAB
     Indication: Gastric cancer
     Dosage: LIQUID
     Route: 042
     Dates: start: 20220222, end: 20220830
  6. TIRAGOLUMAB [Suspect]
     Active Substance: TIRAGOLUMAB
     Indication: Human epidermal growth factor receptor negative
     Dosage: LIQUID
     Route: 042
     Dates: start: 20220916
  7. CAPECITABINE [Suspect]
     Active Substance: CAPECITABINE
     Indication: Oesophageal adenocarcinoma
     Route: 048
     Dates: start: 20210812
  8. CAPECITABINE [Suspect]
     Active Substance: CAPECITABINE
     Indication: Gastric cancer
  9. CAPECITABINE [Suspect]
     Active Substance: CAPECITABINE
     Indication: Human epidermal growth factor receptor negative
  10. OXALIPLATIN [Suspect]
     Active Substance: OXALIPLATIN
     Indication: Oesophageal adenocarcinoma
     Dosage: DATE OF MOST RECENT DOSE PRIOR TO SAE 10/JAN/2022
     Route: 041
     Dates: start: 20210812
  11. OXALIPLATIN [Suspect]
     Active Substance: OXALIPLATIN
     Indication: Gastric cancer
  12. OXALIPLATIN [Suspect]
     Active Substance: OXALIPLATIN
     Indication: Human epidermal growth factor receptor negative
  13. ESTAZOLAM [Concomitant]
     Active Substance: ESTAZOLAM
     Dates: start: 20210813
  14. METFORMIN [Concomitant]
     Active Substance: METFORMIN HYDROCHLORIDE
     Dates: start: 20210812
  15. DAPAGLIFLOZIN [Concomitant]
     Active Substance: DAPAGLIFLOZIN
     Dates: start: 20210812
  16. DENOSUMAB [Concomitant]
     Active Substance: DENOSUMAB
     Dates: start: 20220215, end: 20220215
  17. OXYCODONE AND ACETAMINOPHEN [Concomitant]
     Active Substance: ACETAMINOPHEN\OXYCODONE HYDROCHLORIDE
     Dosage: TOTAL DAILY DOSE:5MG OTHER
     Dates: start: 20220610

REACTIONS (2)
  - Type 2 diabetes mellitus [Not Recovered/Not Resolved]
  - Hyperthyroidism [Recovered/Resolved]

NARRATIVE: CASE EVENT DATE: 20220128
